FAERS Safety Report 24239784 (Version 1)
Quarter: 2024Q3

REPORT INFORMATION
  Report Type: Spontaneous
  Country: US (occurrence: US)
  Receive Date: 20240822
  Receipt Date: 20240822
  Transmission Date: 20241017
  Serious: No
  Sender: AVADEL CNS PHARMA
  Company Number: US-AVADEL CNS PHARMACEUTICALS, LLC-2024AVA01259

PATIENT
  Age: 51 Year
  Sex: Female
  Weight: 90.703 kg

DRUGS (1)
  1. LUMRYZ [Suspect]
     Active Substance: SODIUM OXYBATE
     Indication: Narcolepsy
     Dosage: 4.5 G, ONCE NIGHTLY
     Route: 048
     Dates: start: 20240716, end: 20240716

REACTIONS (9)
  - Cold sweat [Recovered/Resolved]
  - Retching [Recovered/Resolved]
  - Thinking abnormal [Recovered/Resolved]
  - Crying [Recovered/Resolved]
  - Asthenia [Recovered/Resolved]
  - Paraesthesia oral [Recovered/Resolved]
  - Pain [Recovered/Resolved]
  - Paraesthesia [Recovered/Resolved]
  - Nausea [Recovered/Resolved]

NARRATIVE: CASE EVENT DATE: 20240701
